FAERS Safety Report 12118704 (Version 15)
Quarter: 2016Q3

REPORT INFORMATION
  Report Type: Spontaneous
  Country: US (occurrence: US)
  Receive Date: 20160226
  Receipt Date: 20160824
  Transmission Date: 20161109
  Serious: Yes (Other)
  Sender: FDA-Public Use
  Company Number: US-ELI_LILLY_AND_COMPANY-US201602000956

PATIENT
  Age: 54 Year
  Sex: Female
  Weight: 51 kg

DRUGS (14)
  1. LETAIRIS [Suspect]
     Active Substance: AMBRISENTAN
     Dosage: 5 MG, QD
     Route: 065
  2. LETAIRIS [Suspect]
     Active Substance: AMBRISENTAN
     Indication: PULMONARY ARTERIAL HYPERTENSION
     Dosage: 5 MG, QD
     Route: 048
     Dates: start: 20150410
  3. LETAIRIS [Suspect]
     Active Substance: AMBRISENTAN
     Dosage: 20 MG, QD
     Route: 048
     Dates: start: 20151028
  4. LETAIRIS [Suspect]
     Active Substance: AMBRISENTAN
     Dosage: 10 MG, QD
     Route: 065
  5. REMODULIN [Suspect]
     Active Substance: TREPROSTINIL
     Indication: PULMONARY ARTERIAL HYPERTENSION
     Dosage: 0.097 ?G/KG, UNKNOWN
     Route: 042
     Dates: start: 20150409
  6. REVATIO [Suspect]
     Active Substance: SILDENAFIL CITRATE
     Indication: OSTEOPENIA
     Dosage: 80 MG, TID
     Route: 048
  7. ADCIRCA [Suspect]
     Active Substance: TADALAFIL
     Indication: PULMONARY ARTERIAL HYPERTENSION
     Dosage: 40 MG, UNKNOWN
     Route: 065
  8. REVATIO [Suspect]
     Active Substance: SILDENAFIL CITRATE
     Indication: PULMONARY ARTERIAL HYPERTENSION
     Dosage: UNK
     Route: 048
  9. LETAIRIS [Suspect]
     Active Substance: AMBRISENTAN
     Dosage: 10 MG, QD
     Route: 048
     Dates: start: 20150410
  10. REMODULIN [Suspect]
     Active Substance: TREPROSTINIL
     Dosage: 0.099 ?G/KG, UNKNOWN
     Route: 042
  11. REMODULIN [Suspect]
     Active Substance: TREPROSTINIL
     Dosage: 0.100 ?G/KG, UNKNOWN
     Route: 042
  12. REMODULIN [Suspect]
     Active Substance: TREPROSTINIL
     Dosage: 99 NG/KG/MIN, UNKNOWN
     Route: 042
     Dates: start: 20150409
  13. REMODULIN [Suspect]
     Active Substance: TREPROSTINIL
     Dosage: UNK UNK, UNKNOWN
     Route: 042
  14. REMODULIN [Suspect]
     Active Substance: TREPROSTINIL
     Dosage: 94 NG/KG/MIN, OTHER
     Route: 042

REACTIONS (23)
  - Blood immunoglobulin E increased [Not Recovered/Not Resolved]
  - Insomnia [Not Recovered/Not Resolved]
  - Cough [Unknown]
  - Chronic obstructive pulmonary disease [Unknown]
  - Headache [Unknown]
  - Osteopenia [Not Recovered/Not Resolved]
  - Malaise [Not Recovered/Not Resolved]
  - Nausea [Unknown]
  - Urinary tract infection [Unknown]
  - Dyspnoea [Not Recovered/Not Resolved]
  - Upper respiratory tract infection [Unknown]
  - Nasopharyngitis [Unknown]
  - Bacterial infection [Unknown]
  - Fungal infection [Unknown]
  - Bronchopulmonary aspergillosis [Not Recovered/Not Resolved]
  - Eye discharge [Unknown]
  - Weight decreased [Recovered/Resolved]
  - Muscle spasms [Recovered/Resolved]
  - Asthma [Not Recovered/Not Resolved]
  - Ocular hyperaemia [Unknown]
  - Bacteraemia [Unknown]
  - Osteoporosis [Not Recovered/Not Resolved]
  - Chronic obstructive pulmonary disease [Not Recovered/Not Resolved]

NARRATIVE: CASE EVENT DATE: 20150615
